FAERS Safety Report 5754669-X (Version None)
Quarter: 2008Q2

REPORT INFORMATION
  Report Type: 
  Country: None (occurrence: None)
  Receive Date: 20080527
  Receipt Date: 20080506
  Transmission Date: 20081010
  Serious: Yes (Death)
  Sender: FDA-Public Use
  Company Number: 2008AL003566

PATIENT
  Age: 81 Year
  Sex: Male

DRUGS (1)
  1. DIGOXIN [Suspect]
     Indication: CARDIAC DISORDER
     Dosage: 0.25 MG; 5 - 6 YEARS

REACTIONS (3)
  - BRAIN DEATH [None]
  - MYOCARDIAL INFARCTION [None]
  - RENAL FAILURE [None]
